FAERS Safety Report 21597010 (Version 1)
Quarter: 2022Q4

REPORT INFORMATION
  Report Type: Spontaneous
  Country: US (occurrence: US)
  Receive Date: 20221115
  Receipt Date: 20221115
  Transmission Date: 20230112
  Serious: No
  Sender: FDA-Public Use
  Company Number: US-AMNEAL PHARMACEUTICALS-2022-AMRX-00372

PATIENT
  Sex: Male
  Weight: 95 kg

DRUGS (10)
  1. ISOTRETINOIN [Suspect]
     Active Substance: ISOTRETINOIN
     Indication: Acne
     Dosage: 40 MILLIGRAM, BID
     Route: 048
     Dates: start: 2021
  2. ISOTRETINOIN [Suspect]
     Active Substance: ISOTRETINOIN
     Dosage: 40 MILLIGRAM, BID
     Route: 048
     Dates: start: 20220110, end: 20220203
  3. ACCUTANE [Suspect]
     Active Substance: ISOTRETINOIN
     Indication: Product used for unknown indication
     Route: 065
  4. TRETINOIN [Concomitant]
     Active Substance: TRETINOIN
     Indication: Acne
     Dosage: UNK
     Route: 061
  5. DOXYCYCLINE HYCLATE [Concomitant]
     Active Substance: DOXYCYCLINE HYCLATE
     Indication: Acne
     Dosage: UNK
     Route: 048
  6. BENZOYL PEROXIDE [Concomitant]
     Active Substance: BENZOYL PEROXIDE
     Indication: Therapeutic skin care topical
     Dosage: WASH, BID
     Route: 061
  7. DIFFERIN [Concomitant]
     Active Substance: ADAPALENE
     Indication: Therapeutic skin care topical
     Dosage: UNK
     Route: 061
  8. CLEANSER [Concomitant]
     Active Substance: SALICYLIC ACID
     Indication: Therapeutic skin care topical
     Dosage: UNK
     Route: 061
  9. UNSPECIFIED INGREDIENT [Concomitant]
     Active Substance: UNSPECIFIED INGREDIENT
     Indication: Therapeutic skin care topical
     Dosage: UNK
     Route: 061
  10. RETINOIDS FOR TOPICAL USE IN ACNE [Concomitant]
     Indication: Therapeutic skin care topical
     Dosage: UNK
     Route: 061

REACTIONS (4)
  - Myalgia [Recovering/Resolving]
  - Muscular weakness [Unknown]
  - Arthralgia [Recovering/Resolving]
  - Dry skin [Recovering/Resolving]
